FAERS Safety Report 20015427 (Version 1)
Quarter: 2021Q4

REPORT INFORMATION
  Report Type: Spontaneous
  Country: US (occurrence: None)
  Receive Date: 20211030
  Receipt Date: 20211030
  Transmission Date: 20220303
  Serious: Yes (Other)
  Sender: FDA-Public Use
  Company Number: None

PATIENT
  Age: 56 Year
  Sex: Male
  Weight: 67.95 kg

DRUGS (3)
  1. HERBALS\MITRAGYNINE [Suspect]
     Active Substance: HERBALS\MITRAGYNINE
     Indication: Insomnia
     Dosage: FREQUENCY : AS NEEDED;?
     Route: 048
     Dates: start: 20211025, end: 20211026
  2. QUETIAPINE [Concomitant]
     Active Substance: QUETIAPINE
     Dates: start: 20210701
  3. OLMESARTAN [Concomitant]
     Active Substance: OLMESARTAN
     Dates: start: 20210630

REACTIONS (2)
  - Myoclonus [None]
  - Monoplegia [None]

NARRATIVE: CASE EVENT DATE: 20211025
